FAERS Safety Report 9251118 (Version 2)
Quarter: 2013Q2

REPORT INFORMATION
  Report Type: Spontaneous
  Country: US (occurrence: US)
  Receive Date: 20130424
  Receipt Date: 20130502
  Transmission Date: 20140414
  Serious: Yes (Hospitalization, Other)
  Sender: FDA-Public Use
  Company Number: US-SANOFI-AVENTIS-2013SA041740

PATIENT
  Sex: Female

DRUGS (3)
  1. PLAVIX [Suspect]
  2. DILANTIN [Concomitant]
  3. ASPIRIN [Concomitant]

REACTIONS (7)
  - Grand mal convulsion [Unknown]
  - Spinal disorder [Unknown]
  - Respiratory tract infection [Unknown]
  - Cough [Unknown]
  - Nasal congestion [Unknown]
  - Sinusitis [Unknown]
  - Multiple allergies [Unknown]
